FAERS Safety Report 8285903-2 (Version None)
Quarter: 2012Q2

REPORT INFORMATION
  Report Type: 
  Country: None (occurrence: None)
  Receive Date: 20120414
  Receipt Date: 20120410
  Transmission Date: 20120825
  Serious: Yes (Hospitalization)
  Sender: FDA-Public Use
  Company Number: US-ABBOTT-12P-163-0912749-00

PATIENT
  Sex: Female
  Weight: 113.95 kg

DRUGS (3)
  1. HUMIRA [Suspect]
     Indication: RHEUMATOID ARTHRITIS
     Route: 058
     Dates: start: 20080101, end: 20110901
  2. HUMIRA [Suspect]
     Route: 058
     Dates: start: 20111201
  3. HUMIRA [Suspect]
     Route: 058
     Dates: start: 20110901, end: 20111101

REACTIONS (1)
  - OSTEOARTHRITIS [None]
